FAERS Safety Report 6146286-7 (Version None)
Quarter: 2009Q2

REPORT INFORMATION
  Report Type: 
  Country: None (occurrence: None)
  Receive Date: 20090403
  Receipt Date: 20090403
  Transmission Date: 20091009
  Serious: Yes (Hospitalization)
  Sender: FDA-Public Use
  Company Number: None

PATIENT
  Sex: Male
  Weight: 93.8 kg

DRUGS (5)
  1. TAXOTERE [Suspect]
     Dosage: 160 MG
  2. CRESTOR [Concomitant]
  3. PREDNISONE [Concomitant]
  4. THALITONE [Concomitant]
  5. TOPROL-XL [Concomitant]

REACTIONS (9)
  - DIZZINESS [None]
  - FALL [None]
  - HYPOKALAEMIA [None]
  - HYPOMAGNESAEMIA [None]
  - ILL-DEFINED DISORDER [None]
  - NEUTROPENIA [None]
  - ORTHOSTATIC HYPOTENSION [None]
  - SEPSIS [None]
  - WHITE BLOOD CELL COUNT DECREASED [None]
